FAERS Safety Report 19103873 (Version 1)
Quarter: 2021Q2

REPORT INFORMATION
  Report Type: Spontaneous
  Country: US (occurrence: US)
  Receive Date: 20210407
  Receipt Date: 20210407
  Transmission Date: 20210717
  Serious: Yes (Other)
  Sender: FDA-Public Use
  Company Number: US-HIKMA PHARMACEUTICALS USA INC.-US-H14001-21-01569

PATIENT
  Sex: Female
  Weight: 125 kg

DRUGS (28)
  1. ROBAXIN [Suspect]
     Active Substance: METHOCARBAMOL
     Indication: PRODUCT USED FOR UNKNOWN INDICATION
     Dosage: UNKNOWN
     Route: 065
     Dates: start: 2020
  2. HYDROXYCHLOROQUINE [Concomitant]
     Active Substance: HYDROXYCHLOROQUINE
     Indication: RHEUMATOID ARTHRITIS
     Dosage: UNKNOWN
     Route: 065
  3. FUROSEMIDE. [Concomitant]
     Active Substance: FUROSEMIDE
     Indication: DIURETIC THERAPY
     Dosage: UNKNOWN
     Route: 065
  4. VITAMIN D3 [Concomitant]
     Active Substance: CHOLECALCIFEROL
     Indication: VITAMIN SUPPLEMENTATION
     Dosage: UNKNOWN
     Route: 065
  5. VITAMIN C [Concomitant]
     Active Substance: ASCORBIC ACID
     Indication: VITAMIN SUPPLEMENTATION
     Dosage: UNKNOWN
     Route: 065
  6. LOSARTAN. [Concomitant]
     Active Substance: LOSARTAN
     Indication: HYPERTENSION
     Dosage: UNKNOWN
     Route: 065
  7. ACIDOPHILUS [Concomitant]
     Active Substance: LACTOBACILLUS ACIDOPHILUS
     Indication: PROBIOTIC THERAPY
     Dosage: UNKNOWN
     Route: 065
  8. ATORVASTATIN [Concomitant]
     Active Substance: ATORVASTATIN
     Indication: BLOOD CHOLESTEROL INCREASED
     Dosage: UNKNOWN
     Route: 065
  9. DULOXETINE. [Concomitant]
     Active Substance: DULOXETINE
     Indication: RHEUMATIC DISORDER
     Dosage: UNKNOWN
     Route: 065
  10. BABY ASPIRIN [Concomitant]
     Active Substance: ASPIRIN
     Indication: HYPERTENSION
     Dosage: UNKNOWN
     Route: 065
  11. VASCEPA [Concomitant]
     Active Substance: ICOSAPENT ETHYL
     Indication: NUTRITIONAL SUPPLEMENTATION
     Dosage: UNKNOWN
     Route: 065
  12. IRON [Concomitant]
     Active Substance: IRON
     Indication: MINERAL SUPPLEMENTATION
     Dosage: UNKNOWN
     Route: 065
  13. ZINC. [Concomitant]
     Active Substance: ZINC
     Indication: MINERAL SUPPLEMENTATION
     Dosage: UNKNOWN
     Route: 065
  14. HUMIRA [Suspect]
     Active Substance: ADALIMUMAB
     Indication: ARTHRITIS
     Dosage: 40 MG/0.4 ML
     Route: 058
     Dates: start: 2016, end: 20200819
  15. DOCUSATE SODIUM. [Concomitant]
     Active Substance: DOCUSATE SODIUM
     Indication: LAXATIVE SUPPORTIVE CARE
     Dosage: UNKNOWN
     Route: 065
  16. OXYGEN. [Concomitant]
     Active Substance: OXYGEN
     Dosage: UNKNOWN
     Route: 065
  17. CARVEDILOL. [Concomitant]
     Active Substance: CARVEDILOL
     Indication: CARDIAC FAILURE CONGESTIVE
     Dosage: UNKNOWN
     Route: 065
  18. POTASSIUM [Concomitant]
     Active Substance: POTASSIUM
     Indication: MINERAL SUPPLEMENTATION
     Dosage: UNKNOWN
     Route: 065
  19. VENTOLIN [Concomitant]
     Active Substance: ALBUTEROL SULFATE
     Dosage: UNKNOWN
     Route: 065
  20. PLAQUENIL [Concomitant]
     Active Substance: HYDROXYCHLOROQUINE SULFATE
     Indication: PRODUCT USED FOR UNKNOWN INDICATION
     Dosage: UNKNOWN
     Route: 065
  21. VITAMIN C [Concomitant]
     Active Substance: ASCORBIC ACID
     Dosage: UNKNOWN
     Route: 065
  22. VENTOLIN [Concomitant]
     Active Substance: ALBUTEROL SULFATE
     Indication: ASTHMA
     Dosage: UNKNOWN
     Route: 065
  23. OXYGEN. [Concomitant]
     Active Substance: OXYGEN
     Indication: OXYGEN THERAPY
     Dosage: UNKNOWN
     Route: 065
  24. ATORVASTATIN [Concomitant]
     Active Substance: ATORVASTATIN
     Dosage: UNKNOWN
     Route: 065
  25. IRBESARTAN. [Concomitant]
     Active Substance: IRBESARTAN
     Indication: HYPERTENSION
     Dosage: UNKNOWN
     Route: 065
  26. POTASSIUM [Concomitant]
     Active Substance: POTASSIUM
     Dosage: UNKNOWN
     Route: 065
  27. AMLODIPINE [Concomitant]
     Active Substance: AMLODIPINE BESYLATE
     Indication: HYPERTENSION
     Dosage: UNKNOWN
     Route: 065
  28. PANTOPRAZOLE [Concomitant]
     Active Substance: PANTOPRAZOLE
     Indication: GASTROOESOPHAGEAL REFLUX DISEASE
     Dosage: UNKNOWN
     Route: 065

REACTIONS (4)
  - Drug hypersensitivity [Recovered/Resolved]
  - Myalgia [Recovering/Resolving]
  - Hallucination [Recovered/Resolved]
  - Pain [Unknown]
